FAERS Safety Report 24408962 (Version 1)
Quarter: 2024Q4

REPORT INFORMATION
  Report Type: Spontaneous
  Country: US (occurrence: US)
  Receive Date: 20241007
  Receipt Date: 20241007
  Transmission Date: 20250114
  Serious: Yes (Hospitalization)
  Sender: CORIUM
  Company Number: US-CORIUM, LLC-2024COR000181

PATIENT
  Age: 69 Year
  Sex: Male

DRUGS (7)
  1. DONEPEZIL HYDROCHLORIDE [Suspect]
     Active Substance: DONEPEZIL HYDROCHLORIDE
     Indication: Cognitive disorder
     Dosage: 5 MILLIGRAM, QD
     Route: 065
     Dates: start: 202304, end: 2023
  2. DONEPEZIL HYDROCHLORIDE [Suspect]
     Active Substance: DONEPEZIL HYDROCHLORIDE
     Dosage: 10 MILLIGRAM, QD
     Route: 065
     Dates: start: 2023, end: 2023
  3. DONEPEZIL HYDROCHLORIDE [Suspect]
     Active Substance: DONEPEZIL HYDROCHLORIDE
     Dosage: 5 MILLIGRAM, QD
     Route: 065
     Dates: start: 202309
  4. CLOZAPINE [Concomitant]
     Active Substance: CLOZAPINE
     Indication: Product used for unknown indication
     Dosage: 125 MILLIGRAM, QHS
     Dates: start: 202304
  5. CLOZAPINE [Concomitant]
     Active Substance: CLOZAPINE
     Dosage: 50 MILLIGRAM, QHS
     Dates: start: 202304
  6. HALOPERIDOL [Concomitant]
     Active Substance: HALOPERIDOL
     Indication: Product used for unknown indication
     Dosage: 7.5 MILLIGRAM, BID
     Dates: start: 202304
  7. HALOPERIDOL [Concomitant]
     Active Substance: HALOPERIDOL
     Dosage: 5 MILLIGRAM, BID

REACTIONS (1)
  - Delirium [Recovered/Resolved]

NARRATIVE: CASE EVENT DATE: 20230101
